FAERS Safety Report 12281767 (Version 1)
Quarter: 2016Q2

REPORT INFORMATION
  Report Type: Spontaneous
  Country: US (occurrence: US)
  Receive Date: 20160419
  Receipt Date: 20160419
  Transmission Date: 20160815
  Serious: No
  Sender: FDA-Public Use
  Company Number: US-TEVA-644359USA

PATIENT
  Sex: Female

DRUGS (1)
  1. ZECUITY [Suspect]
     Active Substance: SUMATRIPTAN SUCCINATE
     Dosage: HAS USED 8 PATCHES/DATES UNKNOWN
     Route: 062

REACTIONS (3)
  - Application site discolouration [Recovering/Resolving]
  - Application site urticaria [Unknown]
  - Application site erythema [Recovering/Resolving]
